FAERS Safety Report 16064893 (Version 1)
Quarter: 2019Q1

REPORT INFORMATION
  Report Type: Spontaneous
  Country: DE (occurrence: DE)
  Receive Date: 20190312
  Receipt Date: 20190312
  Transmission Date: 20190418
  Serious: Yes (Death, Life-Threatening, Hospitalization, Other)
  Sender: FDA-Public Use
  Company Number: DE-009507513-1902DEU004334

PATIENT
  Age: 67 Year
  Sex: Male
  Weight: 66 kg

DRUGS (1)
  1. KEYTRUDA [Suspect]
     Active Substance: PEMBROLIZUMAB
     Indication: NON-SMALL CELL LUNG CANCER STAGE IIIA
     Dosage: 200 MILLIGRAM EVRY 21 DAYS
     Dates: start: 20190117, end: 2019

REACTIONS (12)
  - Immune-mediated necrotising myopathy [Fatal]
  - Necrotising myositis [Fatal]
  - Hyperthyroidism [Unknown]
  - Blood pressure decreased [Unknown]
  - Sepsis [Unknown]
  - Malignant neoplasm progression [Unknown]
  - Respiratory failure [Fatal]
  - Physical deconditioning [Unknown]
  - Dysphagia [Unknown]
  - Haemoptysis [Unknown]
  - Dysarthria [Unknown]
  - Tachycardia [Unknown]

NARRATIVE: CASE EVENT DATE: 2019
